FAERS Safety Report 5321436-0 (Version None)
Quarter: 2007Q2

REPORT INFORMATION
  Report Type: 
  Country: None (occurrence: None)
  Receive Date: 20070510
  Receipt Date: 20070509
  Transmission Date: 20071010
  Serious: Yes (Hospitalization)
  Sender: FDA-Public Use
  Company Number: A0646836A

PATIENT
  Age: 56 Year
  Sex: Female
  Weight: 111 kg

DRUGS (15)
  1. CARVEDILOL [Suspect]
     Indication: HYPERTENSION
  2. PROCRIT [Suspect]
  3. LASIX [Suspect]
  4. AVAPRO [Suspect]
  5. AMBIEN [Concomitant]
     Dosage: 10MG PER DAY
  6. IRON SULFATETHIAMIN COMPOUND TAB [Concomitant]
     Dosage: 325MG PER DAY
  7. PREMARIN [Concomitant]
     Dosage: .625MG PER DAY
  8. METOLAZONE [Concomitant]
     Dosage: 5MG PER DAY
  9. ETODOLAC [Concomitant]
     Indication: PAIN
     Dosage: 400MG TWICE PER DAY
  10. PREVACID [Concomitant]
     Dosage: 30MG PER DAY
  11. LISINOPRIL [Concomitant]
     Dosage: 20MG TWICE PER DAY
  12. ZOLOFT [Concomitant]
     Dosage: 100MG PER DAY
  13. XANAX [Concomitant]
     Dosage: .25MG PER DAY
  14. POTASSIUM ACETATE [Concomitant]
     Dosage: 8MEQ TWICE PER DAY
  15. DIGITEK [Concomitant]
     Dosage: .25MG PER DAY

REACTIONS (4)
  - ARRHYTHMIA [None]
  - DIZZINESS [None]
  - SYNCOPE [None]
  - URINARY INCONTINENCE [None]
